FAERS Safety Report 7799365-2 (Version None)
Quarter: 2011Q4

REPORT INFORMATION
  Report Type: 
  Country: None (occurrence: None)
  Receive Date: 20111006
  Receipt Date: 20110818
  Transmission Date: 20120403
  Serious: Yes (Disabling, Other)
  Sender: FDA-Public Use
  Company Number: PHHO2011GB14159

PATIENT
  Sex: Female

DRUGS (3)
  1. DICLOFENAC [Suspect]
     Indication: OSTEOARTHRITIS
     Dosage: 50 MG, TID
     Route: 048
     Dates: start: 20081126, end: 20101116
  2. CORACTEN [Concomitant]
     Indication: HYPERTENSION
     Dosage: 30 MG, QD
     Dates: start: 20060502
  3. AMITRIPTYLINE HCL [Concomitant]
     Dosage: 10 MG, BID
     Dates: start: 20090303

REACTIONS (1)
  - BRAIN STEM INFARCTION [None]
